FAERS Safety Report 21289645 (Version 3)
Quarter: 2022Q3

REPORT INFORMATION
  Report Type: Report from Study
  Country: AT (occurrence: AT)
  Receive Date: 20220902
  Receipt Date: 20220919
  Transmission Date: 20221027
  Serious: Yes (Other)
  Sender: FDA-Public Use
  Company Number: AT-BRISTOL-MYERS SQUIBB COMPANY-2022-095173

PATIENT
  Age: 80 Year
  Sex: Female

DRUGS (16)
  1. POMALIDOMIDE [Suspect]
     Active Substance: POMALIDOMIDE
     Indication: Plasma cell myeloma refractory
     Route: 065
     Dates: start: 20191122
  2. POMALIDOMIDE [Suspect]
     Active Substance: POMALIDOMIDE
     Route: 065
     Dates: start: 20210205
  3. POMALIDOMIDE [Suspect]
     Active Substance: POMALIDOMIDE
     Route: 065
     Dates: start: 20210521
  4. POMALIDOMIDE [Suspect]
     Active Substance: POMALIDOMIDE
     Route: 065
     Dates: start: 20211126, end: 20220121
  5. POMALIDOMIDE [Suspect]
     Active Substance: POMALIDOMIDE
     Route: 065
     Dates: end: 20220201
  6. IXAZOMIB [Concomitant]
     Active Substance: IXAZOMIB
     Indication: Product used for unknown indication
     Dosage: D1, D8 AND D15
     Dates: start: 20200515, end: 20210205
  7. DARATUMUMAB [Concomitant]
     Active Substance: DARATUMUMAB
     Indication: Product used for unknown indication
     Dosage: D1, D8, D15 AND D22
     Route: 058
     Dates: start: 20201002
  8. DARATUMUMAB [Concomitant]
     Active Substance: DARATUMUMAB
     Dosage: D1, D15
     Route: 058
     Dates: start: 20201127
  9. DARATUMUMAB [Concomitant]
     Active Substance: DARATUMUMAB
     Dosage: D1, D15
     Dates: start: 20210205
  10. DARATUMUMAB [Concomitant]
     Active Substance: DARATUMUMAB
     Dosage: D1, D15
     Dates: start: 20210521, end: 20211022
  11. EMPLICITI [Concomitant]
     Active Substance: ELOTUZUMAB
     Indication: Product used for unknown indication
     Dosage: D1, 8, 15, 22
     Dates: start: 20211126, end: 20220121
  12. DEXAMETHASONE [Concomitant]
     Active Substance: DEXAMETHASONE
     Indication: Product used for unknown indication
     Dosage: D1, 8, 15, 22
     Dates: start: 20211126, end: 20220121
  13. FILGRASTIM [Concomitant]
     Active Substance: FILGRASTIM
     Indication: Product used for unknown indication
     Dosage: AS NEEDED
  14. XGEVA [Concomitant]
     Active Substance: DENOSUMAB
     Indication: Product used for unknown indication
     Dosage: AS NEEDED
  15. OLEOVIT [DEXPANTHENOL;RETINOL] [Concomitant]
     Indication: Product used for unknown indication
     Dosage: AS NEEDED
  16. ENTEROBENE [Concomitant]
     Indication: Product used for unknown indication
     Dosage: AS NEEDED

REACTIONS (3)
  - Glycosylated haemoglobin increased [Not Recovered/Not Resolved]
  - Diarrhoea [Unknown]
  - Nausea [Unknown]

NARRATIVE: CASE EVENT DATE: 20210521
